FAERS Safety Report 19268889 (Version 1)
Quarter: 2021Q2

REPORT INFORMATION
  Report Type: Spontaneous
  Country: US (occurrence: US)
  Receive Date: 20210517
  Receipt Date: 20210517
  Transmission Date: 20210717
  Serious: Yes (Death)
  Sender: FDA-Public Use
  Company Number: None

PATIENT
  Sex: Female

DRUGS (11)
  1. SILDENAFIL 20 MG TAB [Suspect]
     Active Substance: SILDENAFIL
     Indication: PULMONARY ARTERIAL HYPERTENSION
     Dosage: 1/2 TAB TID PO
     Route: 048
     Dates: start: 20191126
  2. NIFEDIPINE. [Concomitant]
     Active Substance: NIFEDIPINE
  3. FERROUS SULF [Concomitant]
     Active Substance: FERROUS SULFATE
  4. COMBIGAN [Concomitant]
     Active Substance: BRIMONIDINE TARTRATE\TIMOLOL MALEATE
  5. VITAMIN C [Concomitant]
     Active Substance: ASCORBIC ACID
  6. PAROXETINE. [Concomitant]
     Active Substance: PAROXETINE
  7. VITAMIN D3 [Concomitant]
     Active Substance: CHOLECALCIFEROL
  8. CARVEDILOL. [Concomitant]
     Active Substance: CARVEDILOL
  9. PROCRIT [Concomitant]
     Active Substance: ERYTHROPOIETIN
  10. ASPIRIN. [Concomitant]
     Active Substance: ASPIRIN
  11. LATANOPROST. [Concomitant]
     Active Substance: LATANOPROST

REACTIONS (1)
  - Death [None]
